FAERS Safety Report 25786503 (Version 1)
Quarter: 2025Q3

REPORT INFORMATION
  Report Type: Spontaneous
  Country: US (occurrence: US)
  Receive Date: 20250910
  Receipt Date: 20250910
  Transmission Date: 20251020
  Serious: Yes (Life-Threatening, Other)
  Sender: PFIZER
  Company Number: US-PFIZER INC-PV202500108861

PATIENT
  Age: 66 Year
  Sex: Male

DRUGS (3)
  1. FENTANYL CITRATE [Suspect]
     Active Substance: FENTANYL CITRATE
  2. COCAINE [Suspect]
     Active Substance: COCAINE
  3. PHENCYCLIDINE [Suspect]
     Active Substance: PHENCYCLIDINE

REACTIONS (2)
  - Drug use disorder [Recovered/Resolved]
  - Neurotoxicity [Recovered/Resolved]
